FAERS Safety Report 20955624 (Version 1)
Quarter: 2022Q2

REPORT INFORMATION
  Report Type: Spontaneous
  Country: CN (occurrence: CN)
  Receive Date: 20220614
  Receipt Date: 20220614
  Transmission Date: 20220721
  Serious: Yes (Other)
  Sender: FDA-Public Use
  Company Number: CN-BAXTER-2022BAX011843

PATIENT
  Age: 66 Year
  Sex: Male
  Weight: 73 kg

DRUGS (1)
  1. OLIVE OIL\SOYBEAN OIL [Suspect]
     Active Substance: OLIVE OIL\SOYBEAN OIL
     Indication: Nutritional supplementation
     Dosage: 250 ML, QD
     Route: 041
     Dates: start: 20220517, end: 20220517

REACTIONS (3)
  - Tachypnoea [Recovered/Resolved]
  - Heart rate increased [Unknown]
  - Pyrexia [Recovered/Resolved]

NARRATIVE: CASE EVENT DATE: 20220517
